FAERS Safety Report 5683544-4 (Version None)
Quarter: 2008Q1

REPORT INFORMATION
  Report Type: 
  Country: None (occurrence: None)
  Receive Date: 20080326
  Receipt Date: 20080313
  Transmission Date: 20080703
  Serious: Yes (Hospitalization)
  Sender: FDA-Public Use
  Company Number: 150001L08JPN

PATIENT
  Age: 33 Year
  Sex: Female

DRUGS (2)
  1. CHORIONIC GONADTROPIN [Suspect]
     Indication: ASSISTED FERTILISATION
  2. MENOTROPINS [Suspect]
     Indication: ASSISTED FERTILISATION

REACTIONS (7)
  - ANAEMIA [None]
  - DRUG EXPOSURE DURING PREGNANCY [None]
  - HAEMORRHAGIC ASCITES [None]
  - HETEROTOPIC PREGNANCY [None]
  - OVARIAN HAEMORRHAGE [None]
  - OVARIAN HYPERSTIMULATION SYNDROME [None]
  - RUPTURED ECTOPIC PREGNANCY [None]
